FAERS Safety Report 5099369-7 (Version None)
Quarter: 2006Q3

REPORT INFORMATION
  Report Type: 
  Country: None (occurrence: None)
  Receive Date: 20060731
  Receipt Date: 20060622
  Transmission Date: 20061208
  Serious: No
  Sender: FDA-Public Use
  Company Number: 2006PV016192

PATIENT
  Age: 70 Year
  Sex: Male
  Weight: 91.173 kg

DRUGS (6)
  1. BYETTA [Suspect]
     Indication: DIABETES MELLITUS NON-INSULIN-DEPENDENT
     Dosage: 5 MCG;BID;SC, SEE IMAGE
     Route: 058
     Dates: start: 20060619, end: 20060625
  2. BYETTA [Suspect]
     Indication: DIABETES MELLITUS NON-INSULIN-DEPENDENT
     Dosage: 5 MCG;BID;SC, SEE IMAGE
     Route: 058
     Dates: start: 20060626
  3. GLIMEPIRIDE [Concomitant]
  4. LANTUS [Concomitant]
  5. ACTOS [Concomitant]
  6. LANTUS [Concomitant]

REACTIONS (3)
  - BLOOD GLUCOSE INCREASED [None]
  - DRUG INEFFECTIVE [None]
  - DYSPEPSIA [None]
